FAERS Safety Report 10304812 (Version 1)
Quarter: 2014Q3

REPORT INFORMATION
  Report Type: Spontaneous
  Country: FR (occurrence: None)
  Receive Date: 20140710
  Receipt Date: 20140710
  Transmission Date: 20150326
  Serious: Yes (Hospitalization)
  Sender: FDA-Public Use
  Company Number: FK201402630

PATIENT
  Age: 82 Year
  Sex: Female

DRUGS (7)
  1. CEFTRIAXON [Suspect]
     Active Substance: CEFTRIAXONE
     Indication: PRODUCT USED FOR UNKNOWN INDICATION
     Route: 042
     Dates: start: 20131022
  2. LASILIX (FUROSEMIDE) (FUROSEMIDE) [Concomitant]
     Active Substance: FUROSEMIDE
  3. ZOPICLONE (ZOPICLONE) [Concomitant]
     Active Substance: ZOPICLONE
  4. SERESTA (OXAZEPAM) [Concomitant]
     Active Substance: OXAZEPAM
  5. DOLLIPRANCE (PARACETAMOL) [Concomitant]
  6. LEVOTHYROX (LEVOTHYROXINE SODIUM) [Concomitant]
     Active Substance: LEVOTHYROXINE SODIUM
  7. MINISINTROM [Suspect]
     Active Substance: ACENOCOUMAROL
     Indication: PRODUCT USED FOR UNKNOWN INDICATION
     Route: 048
     Dates: end: 20131025

REACTIONS (14)
  - Coma [None]
  - Gastritis [None]
  - Gastrointestinal haemorrhage [None]
  - Blood creatinine increased [None]
  - Overdose [None]
  - Duodenal ulcer [None]
  - Ischaemic stroke [None]
  - Oesophageal haemorrhage [None]
  - Blood urea increased [None]
  - Haemoglobin decreased [None]
  - Prothrombin time prolonged [None]
  - International normalised ratio increased [None]
  - Anaemia [None]
  - Platelet count decreased [None]

NARRATIVE: CASE EVENT DATE: 20131026
